FAERS Safety Report 11278779 (Version 1)
Quarter: 2015Q3

REPORT INFORMATION
  Report Type: Spontaneous
  Country: TR (occurrence: None)
  Receive Date: 20150715
  Receipt Date: 20150715
  Transmission Date: 20151125
  Serious: Yes (Other)
  Sender: FDA-Public Use
  Company Number: INT_00835_2015

PATIENT
  Age: 71 Year
  Sex: Male

DRUGS (2)
  1. CISPLATIN (CISPLATIN) (HQ SPECIALTY) [Suspect]
     Active Substance: CISPLATIN
     Indication: ADENOSQUAMOUS CELL CARCINOMA
     Dosage: SINGLE CYCLE
  2. DOCETAXEL (DOCETAXEL) [Suspect]
     Active Substance: DOCETAXEL
     Indication: ADENOSQUAMOUS CELL CARCINOMA
     Dosage: SINGLE CYCLE

REACTIONS (2)
  - Scrotal mass [None]
  - Kaposi^s sarcoma [None]
